FAERS Safety Report 7743949-4 (Version None)
Quarter: 2011Q3

REPORT INFORMATION
  Report Type: 
  Country: None (occurrence: None)
  Receive Date: 20110825
  Receipt Date: 20110816
  Transmission Date: 20111222
  Serious: Yes (Other)
  Sender: FDA-Public Use
  Company Number: 2011SP038850

PATIENT
  Age: 66 Year
  Sex: Male
  Weight: 65 kg

DRUGS (13)
  1. ISKEMIL [Concomitant]
  2. CLARITIN [Suspect]
     Indication: NASOPHARYNGITIS
     Dosage: 10 MG;HS;PO
     Route: 048
     Dates: start: 20010101
  3. DEPAKOTE [Concomitant]
  4. SAXAGLIPTIN [Concomitant]
  5. CLARITIN [Suspect]
     Dosage: 10 MG;HS;PO
     Route: 048
     Dates: start: 20110803
  6. DOMPERIDONE [Concomitant]
  7. THIAMINE HYDROCHLORIDE [Concomitant]
  8. LISINOPRIL [Concomitant]
  9. ATENOLOL [Concomitant]
  10. PANTOPRAZOLE [Concomitant]
  11. ASPIRIN [Concomitant]
  12. LIPITOR [Concomitant]
  13. PENTOXIFILIN [Concomitant]

REACTIONS (5)
  - HYPERTENSION [None]
  - DRUG INEFFECTIVE [None]
  - CORONARY ARTERY BYPASS [None]
  - IRRITABILITY [None]
  - FLATULENCE [None]
